FAERS Safety Report 4853274-7 (Version None)
Quarter: 2005Q4

REPORT INFORMATION
  Report Type: 
  Country: None (occurrence: None)
  Receive Date: 20051214
  Receipt Date: 20050916
  Transmission Date: 20060501
  Serious: Yes (Death, Hospitalization)
  Sender: FDA-Public Use
  Company Number: US-GLAXOSMITHKLINE-A0574547A

PATIENT
  Age: 15 Year
  Sex: Female
  Weight: 80.5 kg

DRUGS (2)
  1. WELLBUTRIN [Suspect]
     Indication: DEPRESSION
     Dosage: 300MG PER DAY
     Route: 048
     Dates: start: 20050912, end: 20050914
  2. ORAL CONTRACEPTIVES [Concomitant]

REACTIONS (4)
  - CONVULSION [None]
  - MYOCARDIAL INFARCTION [None]
  - OVERDOSE [None]
  - SUICIDE ATTEMPT [None]
